FAERS Safety Report 8265692-8 (Version None)
Quarter: 2012Q2

REPORT INFORMATION
  Report Type: 
  Country: None (occurrence: None)
  Receive Date: 20120406
  Receipt Date: 20120322
  Transmission Date: 20120825
  Serious: No
  Sender: FDA-Public Use
  Company Number: US-B.I. PHARMACEUTICALS,INC./RIDGEFIELD-2012-BP-03266BP

PATIENT
  Sex: Male
  Weight: 97.07 kg

DRUGS (11)
  1. LORAZEPAM [Concomitant]
     Indication: ANXIETY
     Dosage: 0.5 MG
     Route: 048
  2. JOINT ADVANTAGE GOLD [Concomitant]
     Indication: PROPHYLAXIS
     Route: 048
  3. VITAMIN B COMPLEX CAP [Concomitant]
     Indication: PROPHYLAXIS
     Route: 048
  4. MAGNESIUM [Concomitant]
     Indication: PROPHYLAXIS
     Route: 048
  5. ASCORBIC ACID [Concomitant]
     Indication: PROPHYLAXIS
     Route: 048
  6. OMEGA 3-COMPLEX [Concomitant]
     Indication: PROPHYLAXIS
     Route: 048
  7. PRADAXA [Suspect]
     Indication: ATRIAL FIBRILLATION
     Dosage: 150 MG
     Route: 048
     Dates: start: 20120117
  8. GINKGO BILOBA [Concomitant]
     Indication: TINNITUS
     Route: 048
  9. ATENOLOL [Concomitant]
     Indication: HYPERTENSION
     Dosage: 25 MG
     Route: 048
     Dates: start: 19700101
  10. VITAMIN D-3 COMPLEX [Concomitant]
     Indication: PROPHYLAXIS
     Route: 048
  11. LOSARTAN POTASSIUM [Concomitant]
     Indication: HYPERTENSION
     Dosage: 25 MG
     Route: 048

REACTIONS (6)
  - GROIN PAIN [None]
  - HAEMOPTYSIS [None]
  - GENITAL RASH [None]
  - RASH [None]
  - ORAL HERPES [None]
  - ABDOMINAL PAIN UPPER [None]
